FAERS Safety Report 5021904-5 (Version None)
Quarter: 2006Q2

REPORT INFORMATION
  Report Type: 
  Country: None (occurrence: None)
  Receive Date: 20060605
  Receipt Date: 20060530
  Transmission Date: 20061013
  Serious: Yes (Other)
  Sender: FDA-Public Use
  Company Number: 007603

PATIENT
  Sex: Female

DRUGS (7)
  1. MEDROXYPROGESTERONE ACETATE [Suspect]
     Dosage: ORAL
     Route: 048
     Dates: start: 19980601, end: 19991116
  2. MEDROXYPROGESTERONE ACETATE [Suspect]
     Dosage: ORAL
     Route: 048
     Dates: start: 20011114, end: 20020301
  3. PROVERA [Suspect]
     Dosage: ORAL
     Route: 048
     Dates: start: 19980601, end: 19991116
  4. PROVERA [Suspect]
     Dosage: ORAL
     Route: 048
     Dates: start: 20011114, end: 20020301
  5. PREMARIN [Suspect]
     Dosage: ORAL
     Route: 048
     Dates: start: 19980601, end: 19991116
  6. PREMARIN [Suspect]
     Dosage: ORAL
     Route: 048
     Dates: start: 20011114, end: 20020301
  7. PREMPRO [Suspect]
     Dosage: ORAL
     Route: 048
     Dates: start: 19991117, end: 20011113

REACTIONS (1)
  - BREAST CANCER FEMALE [None]
